FAERS Safety Report 14301352 (Version 4)
Quarter: 2018Q2

REPORT INFORMATION
  Report Type: Report from Study
  Country: JP (occurrence: JP)
  Receive Date: 20171219
  Receipt Date: 20180418
  Transmission Date: 20180711
  Serious: Yes (Hospitalization, Other)
  Sender: FDA-Public Use
  Company Number: JP-INCYTE CORPORATION-2017IN010795

PATIENT

DRUGS (8)
  1. BAKTAR [Concomitant]
     Active Substance: SULFAMETHOXAZOLE\TRIMETHOPRIM
     Indication: OPPORTUNISTIC INFECTION PROPHYLAXIS
     Dosage: 1 G, QD
     Route: 048
     Dates: start: 20160618, end: 20160705
  2. JAKAVI [Suspect]
     Active Substance: RUXOLITINIB
     Dosage: 5 MG, BID
     Route: 048
     Dates: start: 20160607, end: 20160613
  3. JAKAVI [Suspect]
     Active Substance: RUXOLITINIB
     Dosage: 5 MG, QD
     Route: 048
     Dates: start: 20160614, end: 20160621
  4. JAKAVI [Suspect]
     Active Substance: RUXOLITINIB
     Indication: PRIMARY MYELOFIBROSIS
     Dosage: 15 MG, BID
     Route: 048
     Dates: start: 20141201, end: 20150323
  5. JAKAVI [Suspect]
     Active Substance: RUXOLITINIB
     Dosage: 10 MG, BID
     Route: 048
     Dates: start: 20150324, end: 20151223
  6. JAKAVI [Suspect]
     Active Substance: RUXOLITINIB
     Dosage: 12.5 MG, BID
     Route: 048
     Dates: start: 20151224, end: 20160517
  7. JAKAVI [Suspect]
     Active Substance: RUXOLITINIB
     Dosage: 10 MG, BID
     Route: 048
     Dates: start: 20160518, end: 20160602
  8. JAKAVI [Suspect]
     Active Substance: RUXOLITINIB
     Dosage: 7.5 MG, BID
     Route: 048
     Dates: start: 20160603, end: 20160606

REACTIONS (8)
  - Splenomegaly [Unknown]
  - Pneumonia [Recovered/Resolved]
  - Blood bilirubin increased [Unknown]
  - Platelet count decreased [Unknown]
  - White blood cell count decreased [Unknown]
  - Concomitant disease aggravated [Unknown]
  - Haemoglobin decreased [Unknown]
  - Blood lactate dehydrogenase increased [Recovering/Resolving]

NARRATIVE: CASE EVENT DATE: 20150105
